FAERS Safety Report 24070100 (Version 1)
Quarter: 2024Q3

REPORT INFORMATION
  Report Type: Report from Study
  Country: US (occurrence: US)
  Receive Date: 20240710
  Receipt Date: 20240710
  Transmission Date: 20241017
  Serious: No
  Sender: ROCHE
  Company Number: US-ROCHE-3557939

PATIENT
  Age: 74 Year
  Sex: Female
  Weight: 58.97 kg

DRUGS (11)
  1. VABYSMO [Suspect]
     Active Substance: FARICIMAB\FARICIMAB-SVOA
     Indication: Retinal vein occlusion
     Dosage: INJECTION LEFT EYE, DATE OF SERVICE: 13/JUN/2023; DATE OF TREATMENT: 24/APR/2024
     Route: 050
     Dates: start: 2022
  2. VABYSMO [Suspect]
     Active Substance: FARICIMAB\FARICIMAB-SVOA
     Indication: Macular oedema
  3. VABYSMO [Suspect]
     Active Substance: FARICIMAB\FARICIMAB-SVOA
     Indication: Retinal haemorrhage
  4. AVASTIN [Suspect]
     Active Substance: BEVACIZUMAB
     Indication: Retinal vein occlusion
     Route: 065
  5. AVASTIN [Suspect]
     Active Substance: BEVACIZUMAB
     Indication: Retinal haemorrhage
  6. AMLODIPINE [Concomitant]
     Active Substance: AMLODIPINE BESYLATE
     Indication: Blood pressure measurement
     Dosage: ORAL TABLET 5 MG ONCE DAILY
     Dates: start: 2019
  7. CALCIUM CITRATE [Concomitant]
     Active Substance: CALCIUM CITRATE
     Indication: Osteoporosis
     Route: 048
  8. PROLIA [Concomitant]
     Active Substance: DENOSUMAB
     Indication: Osteoporosis
     Route: 042
  9. OZURDEX [Concomitant]
     Active Substance: DEXAMETHASONE
     Dosage: INJECTION IN THE EYE
     Dates: start: 202208
  10. ATORVASTATIN [Concomitant]
     Active Substance: ATORVASTATIN
     Indication: Blood cholesterol
     Dosage: ORAL TABLET 10 MG ONCE DAILY
     Dates: start: 2022
  11. EYLEA [Concomitant]
     Active Substance: AFLIBERCEPT

REACTIONS (4)
  - Haemorrhage [Recovering/Resolving]
  - Metamorphopsia [Recovering/Resolving]
  - Cataract [Recovered/Resolved]
  - Off label use [Unknown]
